FAERS Safety Report 17083949 (Version 2)
Quarter: 2019Q4

REPORT INFORMATION
  Report Type: Report from Study
  Country: US (occurrence: US)
  Receive Date: 20191127
  Receipt Date: 20191223
  Transmission Date: 20200122
  Serious: Yes (Other)
  Sender: FDA-Public Use
  Company Number: US-EMD SERONO-9131082

PATIENT
  Age: 74 Year
  Sex: Female
  Weight: 135 kg

DRUGS (2)
  1. AVELUMAB [Suspect]
     Active Substance: AVELUMAB
     Indication: NEUROENDOCRINE CARCINOMA OF THE SKIN
     Route: 042
     Dates: start: 20170829
  2. AVELUMAB [Suspect]
     Active Substance: AVELUMAB
     Dates: end: 20191105

REACTIONS (1)
  - Polymyalgia rheumatica [Not Recovered/Not Resolved]

NARRATIVE: CASE EVENT DATE: 20191119
